FAERS Safety Report 8172996-6 (Version None)
Quarter: 2012Q1

REPORT INFORMATION
  Report Type: 
  Country: None (occurrence: None)
  Receive Date: 20120229
  Receipt Date: 20120224
  Transmission Date: 20120608
  Serious: Yes (Other)
  Sender: FDA-Public Use
  Company Number: US-JNJFOC-20120213102

PATIENT
  Age: 75 Year
  Sex: Female
  Weight: 46.27 kg

DRUGS (13)
  1. BENADRYL [Suspect]
     Route: 048
  2. VITAMIN B-12 [Concomitant]
     Indication: VITAMIN SUPPLEMENTATION
     Route: 065
  3. METOPROLOL [Concomitant]
     Indication: HYPERTENSION
     Dosage: 1.5 TABS
     Route: 065
  4. CLONIDINE HCL [Concomitant]
     Indication: HYPERTENSION
     Route: 065
  5. BENADRYL [Suspect]
     Indication: RASH
     Dosage: TWO TABLETS TWICE, FOUR HOURS APART
     Route: 048
     Dates: start: 20120224
  6. ASPIRIN [Concomitant]
     Indication: CARDIAC DISORDER
     Route: 065
  7. LANTUS [Concomitant]
     Indication: TYPE 2 DIABETES MELLITUS
     Dosage: 10 UNITS SQ NIGHTLY
     Route: 065
  8. HYDRALAZINE HCL [Concomitant]
     Indication: HYPERTENSION
     Route: 065
  9. AMLODIPINE [Concomitant]
     Indication: HYPERTENSION
     Route: 065
  10. SERTRALINE HYDROCHLORIDE [Concomitant]
     Indication: ANXIETY
     Route: 065
  11. PREDNISONE [Suspect]
     Indication: RASH
     Route: 065
     Dates: start: 20120224
  12. HUMALOG [Concomitant]
     Indication: TYPE 2 DIABETES MELLITUS
     Dosage: SLIDING SCALE
     Route: 065
  13. CRESTOR [Concomitant]
     Indication: BLOOD CHOLESTEROL INCREASED
     Route: 065

REACTIONS (2)
  - BLOOD GLUCOSE INCREASED [None]
  - OFF LABEL USE [None]
